FAERS Safety Report 5565284-5 (Version None)
Quarter: 2007Q4

REPORT INFORMATION
  Report Type: 
  Country: None (occurrence: None)
  Receive Date: 20071218
  Receipt Date: 20071204
  Transmission Date: 20080405
  Serious: Yes (Other)
  Sender: FDA-Public Use
  Company Number: US-PFIZER INC-2007101167

PATIENT
  Sex: Male
  Weight: 65.8 kg

DRUGS (12)
  1. MARAVIROC [Suspect]
     Indication: HIV TEST POSITIVE
     Route: 048
  2. RALTEGRAVIR [Concomitant]
     Route: 048
  3. TIPRANAVIR [Concomitant]
     Route: 048
     Dates: start: 20070327
  4. RITONAVIR [Concomitant]
     Route: 048
     Dates: start: 20070327
  5. COMBIVIR [Concomitant]
     Dosage: TEXT:1 TAB
     Route: 048
     Dates: start: 20070327
  6. VIREAD [Concomitant]
     Route: 048
     Dates: start: 20070327
  7. TOPROL-XL [Concomitant]
     Indication: HYPERTENSION
     Route: 048
     Dates: start: 20040420
  8. LISINOPRIL [Concomitant]
     Indication: HYPERTENSION
     Dosage: TEXT:1 TAB
     Route: 048
     Dates: start: 20060417
  9. VALTREX [Concomitant]
     Indication: PROPHYLAXIS
     Route: 048
     Dates: start: 20030101
  10. HYDROCHLOROTHIAZIDE [Concomitant]
     Indication: HYPERTENSION
     Dosage: TEXT:1 TAB
     Route: 048
     Dates: start: 20070122
  11. NANDROLONE DECANOATE [Concomitant]
     Indication: HYPOGONADISM
     Route: 030
     Dates: start: 20070901
  12. DEPO-TESTOSTERONE [Concomitant]
     Route: 030
     Dates: start: 20070901

REACTIONS (1)
  - SQUAMOUS CELL CARCINOMA [None]
